FAERS Safety Report 5296480-2 (Version None)
Quarter: 2007Q2

REPORT INFORMATION
  Report Type: 
  Country: None (occurrence: None)
  Receive Date: 20070413
  Receipt Date: 20070403
  Transmission Date: 20071010
  Serious: Yes (Hospitalization, Other)
  Sender: FDA-Public Use
  Company Number: US-PFIZER INC-2006068678

PATIENT
  Sex: Female

DRUGS (3)
  1. NEURONTIN [Suspect]
     Indication: PAIN
     Dosage: TEXT:UNKNOWN-FREQ:UNKNOWN
     Route: 065
  2. TRAZODONE HCL [Suspect]
  3. SEROQUEL [Suspect]

REACTIONS (10)
  - AGGRESSION [None]
  - AGITATION [None]
  - DRUG INEFFECTIVE [None]
  - DYSTHYMIC DISORDER [None]
  - EXCORIATION [None]
  - HYPOKALAEMIA [None]
  - HYPOTENSION [None]
  - INTENTIONAL OVERDOSE [None]
  - LACERATION [None]
  - SUICIDE ATTEMPT [None]
